FAERS Safety Report 20447591 (Version 1)
Quarter: 2022Q1

REPORT INFORMATION
  Report Type: Report from Study
  Country: US (occurrence: US)
  Receive Date: 20220209
  Receipt Date: 20220209
  Transmission Date: 20220423
  Serious: Yes (Hospitalization)
  Sender: FDA-Public Use
  Company Number: US-HRARD-2021000192

PATIENT
  Sex: Female

DRUGS (12)
  1. LYSODREN [Suspect]
     Active Substance: MITOTANE
     Dosage: 1500 MG BID
     Route: 048
     Dates: start: 20201107, end: 202103
  2. LYSODREN [Suspect]
     Active Substance: MITOTANE
     Dosage: DOSE DECREASED TO 5 TABLETS DAILY
     Route: 048
     Dates: start: 202103
  3. LYSODREN [Suspect]
     Active Substance: MITOTANE
     Dates: start: 20201106, end: 20210328
  4. ATORVASTATIN [Concomitant]
     Active Substance: ATORVASTATIN
     Dosage: UNK
  5. CITALOPRAM [Concomitant]
     Active Substance: CITALOPRAM HYDROBROMIDE
  6. ENOXAPARIN [Concomitant]
     Active Substance: ENOXAPARIN
  7. KEPPRA [Concomitant]
     Active Substance: LEVETIRACETAM
  8. LEVOTHYROXINE [Concomitant]
     Active Substance: LEVOTHYROXINE
  9. PANTOPRAZOLE [Concomitant]
     Active Substance: PANTOPRAZOLE
  10. ZOFRAN [Concomitant]
     Active Substance: ONDANSETRON HYDROCHLORIDE
  11. PREDNISONE [Concomitant]
     Active Substance: PREDNISONE
  12. Flodrinef [Concomitant]

REACTIONS (1)
  - Diarrhoea [Recovering/Resolving]
